FAERS Safety Report 5596555-4 (Version None)
Quarter: 2007Q4

REPORT INFORMATION
  Report Type: 
  Country: None (occurrence: None)
  Receive Date: 20071219
  Receipt Date: 20071106
  Transmission Date: 20080405
  Serious: No
  Sender: FDA-Public Use
  Company Number: US-WYE-H01104607

PATIENT
  Age: 58 Year
  Sex: Male

DRUGS (3)
  1. TORISEL [Suspect]
     Indication: METASTATIC RENAL CELL CARCINOMA
     Dosage: 40 MG 1X PER 1 WK, INTRAVENOUS
     Route: 042
     Dates: start: 20071029, end: 20071105
  2. DILANTIN [Concomitant]
  3. PHENOBARBITAL TAB [Concomitant]

REACTIONS (2)
  - NEUTROPHIL COUNT DECREASED [None]
  - STOMATITIS [None]
